FAERS Safety Report 20788188 (Version 2)
Quarter: 2022Q2

REPORT INFORMATION
  Report Type: Other
  Country: US (occurrence: None)
  Receive Date: 20220505
  Receipt Date: 20220609
  Transmission Date: 20220721
  Serious: Yes (Hospitalization)
  Sender: FDA-Public Use
  Company Number: US-ROCHE-3085572

PATIENT
  Age: 64 Year
  Sex: Male
  Weight: 98.064 kg

DRUGS (3)
  1. OCREVUS [Suspect]
     Active Substance: OCRELIZUMAB
     Indication: Relapsing-remitting multiple sclerosis
     Dosage: (PRESCRIBED AS INFUSE 600 MG EVERY 6 MONTH) ?DATE OF TREATMENT: 06/OCT/2021, 09/APR/2021, 09/OCT/202
     Route: 042
  2. LOSARTAN [Concomitant]
     Active Substance: LOSARTAN
  3. PREDNISONE [Concomitant]
     Active Substance: PREDNISONE

REACTIONS (1)
  - COVID-19 pneumonia [Recovering/Resolving]

NARRATIVE: CASE EVENT DATE: 20220225
